FAERS Safety Report 12764213 (Version 4)
Quarter: 2017Q1

REPORT INFORMATION
  Report Type: Spontaneous
  Country: DE (occurrence: DE)
  Receive Date: 20160920
  Receipt Date: 20170119
  Transmission Date: 20170428
  Serious: Yes (Hospitalization, Other)
  Sender: FDA-Public Use
  Company Number: PHHY2016DE127486

PATIENT
  Age: 63 Year
  Sex: Female
  Weight: 70 kg

DRUGS (9)
  1. RAMIPRIL. [Concomitant]
     Active Substance: RAMIPRIL
     Dosage: 2.5 MG, BID (1-0-1)
     Route: 065
     Dates: start: 20160716, end: 20160801
  2. IMMUNOSPORIN [Suspect]
     Active Substance: CYCLOSPORINE
     Dosage: 100 MG, BID (1-0-1)
     Route: 048
     Dates: start: 20160602, end: 201611
  3. L-THYROXIN [Concomitant]
     Active Substance: LEVOTHYROXINE SODIUM
     Dosage: UNK
     Route: 048
  4. L-THYROXIN [Concomitant]
     Active Substance: LEVOTHYROXINE SODIUM
     Indication: GOITRE
     Dosage: 0.75 UG, (1-0-0)
     Route: 048
  5. VALSARTAN. [Concomitant]
     Active Substance: VALSARTAN
     Dosage: 80 MG, BID  (1-0-1)
     Route: 065
     Dates: start: 20160817
  6. AMLODIPINE [Concomitant]
     Active Substance: AMLODIPINE BESYLATE
     Indication: PRODUCT USED FOR UNKNOWN INDICATION
     Dosage: 5 MG, QD (0-0-1)
     Route: 065
  7. IMMUNOSPORIN [Suspect]
     Active Substance: CYCLOSPORINE
     Indication: PSORIASIS
     Dosage: 200 MG, QD
     Route: 048
     Dates: start: 20160601, end: 20160601
  8. VALSARTAN. [Concomitant]
     Active Substance: VALSARTAN
     Indication: PRODUCT USED FOR UNKNOWN INDICATION
     Dosage: 80 MG, QD  (1-0-0)
     Route: 065
     Dates: start: 20160802, end: 20160816
  9. RAMIPRIL. [Concomitant]
     Active Substance: RAMIPRIL
     Indication: PRODUCT USED FOR UNKNOWN INDICATION
     Dosage: 2.5 MG, QD  (1-0-0)
     Route: 065
     Dates: start: 20160706, end: 20160715

REACTIONS (13)
  - White blood cell count decreased [Unknown]
  - Headache [Recovered/Resolved with Sequelae]
  - Tongue discolouration [Recovered/Resolved]
  - Glomerular filtration rate decreased [Recovering/Resolving]
  - General physical condition abnormal [Unknown]
  - Blood cholesterol increased [Recovered/Resolved]
  - Red blood cell count decreased [Unknown]
  - Musculoskeletal stiffness [Recovered/Resolved with Sequelae]
  - Diarrhoea [Recovered/Resolved]
  - Hypertensive crisis [Recovered/Resolved with Sequelae]
  - Hypertensive crisis [Recovered/Resolved with Sequelae]
  - Pain [Recovered/Resolved]
  - Hypertension [Unknown]

NARRATIVE: CASE EVENT DATE: 20160610
